FAERS Safety Report 5452773-7 (Version None)
Quarter: 2007Q3

REPORT INFORMATION
  Report Type: 
  Country: None (occurrence: None)
  Receive Date: 20070914
  Receipt Date: 20070912
  Transmission Date: 20080115
  Serious: Yes (Death, Other)
  Sender: FDA-Public Use
  Company Number: CH-BRISTOL-MYERS SQUIBB COMPANY-13905054

PATIENT

DRUGS (4)
  1. IFOSFAMIDE [Suspect]
     Indication: SARCOMA
  2. DOXORUBICIN HCL [Suspect]
     Indication: SARCOMA
  3. MESNA [Suspect]
     Indication: SARCOMA
  4. GRANULOCYTE CSF [Suspect]
     Indication: SARCOMA

REACTIONS (3)
  - HAEMATOTOXICITY [None]
  - NEUROTOXICITY [None]
  - SEPTIC SHOCK [None]
